FAERS Safety Report 10284614 (Version 1)
Quarter: 2014Q3

REPORT INFORMATION
  Report Type: Spontaneous
  Country: US (occurrence: None)
  Receive Date: 20140703
  Receipt Date: 20140703
  Transmission Date: 20150326
  Serious: Yes (Hospitalization)
  Sender: FDA-Public Use
  Company Number: None

PATIENT
  Age: 63 Year
  Sex: Male
  Weight: 67.7 kg

DRUGS (2)
  1. CAPECITABINE [Suspect]
     Active Substance: CAPECITABINE
     Indication: ADENOCARCINOMA GASTRIC
     Route: 048
     Dates: start: 20140515, end: 20140605
  2. EPIRUBICIN [Suspect]
     Active Substance: EPIRUBICIN
     Indication: ADENOCARCINOMA GASTRIC
     Route: 042
     Dates: start: 20140605, end: 20140605

REACTIONS (10)
  - Anaemia [None]
  - Vomiting [None]
  - Leukopenia [None]
  - Diarrhoea [None]
  - Thrombocytopenia [None]
  - Nausea [None]
  - Hyponatraemia [None]
  - Febrile neutropenia [None]
  - Dizziness [None]
  - Hypokalaemia [None]

NARRATIVE: CASE EVENT DATE: 20140614
